FAERS Safety Report 9396598 (Version 1)
Quarter: 2013Q3

REPORT INFORMATION
  Report Type: Spontaneous
  Country: GB (occurrence: GB)
  Receive Date: 20130711
  Receipt Date: 20130711
  Transmission Date: 20140515
  Serious: Yes (Hospitalization)
  Sender: FDA-Public Use
  Company Number: GB-WATSON-2013-12243

PATIENT
  Sex: 0

DRUGS (6)
  1. CARBOPLATIN (UNKNOWN) [Suspect]
     Indication: OVARIAN CANCER
     Dosage: UNKNOWN
     Route: 042
     Dates: start: 20130524
  2. AVASTIN /00848101/ [Suspect]
     Indication: OVARIAN CANCER
     Dosage: 15 MG/KG, ONE PER 3 WEEKS
     Route: 065
     Dates: start: 20130524
  3. PACLITAXEL (UNKNOWN) [Suspect]
     Indication: OVARIAN CANCER
     Dosage: 175 MG/M2, ONE PER 3 WEEKS
     Route: 065
     Dates: start: 20130524
  4. DEXAMETHASONE [Concomitant]
     Indication: NAUSEA
     Dosage: 4 MG, BID
     Route: 065
     Dates: start: 20130525, end: 20130527
  5. DOMPERIDONE [Concomitant]
     Indication: NAUSEA
     Dosage: 20 MG, UNKNOWN
     Route: 065
     Dates: start: 20130525
  6. LANSOPRAZOLE [Concomitant]
     Indication: PRODUCT USED FOR UNKNOWN INDICATION
     Dosage: 30 MG, DAILY
     Route: 065
     Dates: start: 20130525

REACTIONS (1)
  - Small intestinal perforation [Recovering/Resolving]
